FAERS Safety Report 9632901 (Version 3)
Quarter: 2013Q4

REPORT INFORMATION
  Report Type: Report from Study
  Country: CA (occurrence: CA)
  Receive Date: 20131018
  Receipt Date: 20131203
  Transmission Date: 20140711
  Serious: Yes (Hospitalization)
  Sender: FDA-Public Use
  Company Number: CA-ABBVIE-13P-028-1155132-00

PATIENT
  Age: 64 Year
  Sex: Female

DRUGS (1)
  1. HUMIRA [Suspect]
     Indication: CROHN^S DISEASE
     Route: 058
     Dates: start: 20090218, end: 201308

REACTIONS (5)
  - Small intestinal obstruction [Recovered/Resolved]
  - Enteritis [Unknown]
  - Colitis [Unknown]
  - Proctitis [Unknown]
  - Pneumonia [Not Recovered/Not Resolved]
